FAERS Safety Report 5800118-2 (Version None)
Quarter: 2008Q3

REPORT INFORMATION
  Report Type: 
  Country: None (occurrence: None)
  Receive Date: 20080701
  Receipt Date: 20080616
  Transmission Date: 20090109
  Serious: Yes (Hospitalization)
  Sender: FDA-Public Use
  Company Number: 2008AL007084

PATIENT
  Age: 75 Year
  Sex: Female
  Weight: 46.7205 kg

DRUGS (1)
  1. DIGOXIN [Suspect]
     Indication: HEART RATE IRREGULAR
     Dosage: 0.125MG, QD, PO
     Route: 048
     Dates: start: 20080201, end: 20080401

REACTIONS (4)
  - DIZZINESS [None]
  - EXTRASYSTOLES [None]
  - MALAISE [None]
  - NAUSEA [None]
